FAERS Safety Report 9026381 (Version 2)
Quarter: 2013Q1

REPORT INFORMATION
  Report Type: Spontaneous
  Country: BR (occurrence: BR)
  Receive Date: 20130123
  Receipt Date: 20130221
  Transmission Date: 20140127
  Serious: Yes (Other)
  Sender: FDA-Public Use
  Company Number: PHHY2013BR005061

PATIENT
  Sex: Female

DRUGS (4)
  1. EXELON PATCH [Suspect]
     Indication: MEMORY IMPAIRMENT
     Dosage: 4.6 MG, DAILY
     Route: 062
  2. TEGRETOL CR [Suspect]
     Indication: TRIGEMINAL NEURALGIA
     Dosage: 400 MG, QID
     Route: 048
  3. LEXOTAN [Suspect]
     Dosage: UNK
  4. HORMONES NOS [Concomitant]
     Indication: HORMONE REPLACEMENT THERAPY

REACTIONS (11)
  - Skull fracture [Recovering/Resolving]
  - Femur fracture [Recovering/Resolving]
  - Hemiplegia [Recovering/Resolving]
  - Limb deformity [Recovering/Resolving]
  - Fall [Recovering/Resolving]
  - Hypokinesia [Recovering/Resolving]
  - Eye disorder [Recovering/Resolving]
  - Dyspnoea [Recovering/Resolving]
  - Neuropathy peripheral [Recovering/Resolving]
  - Sensory disturbance [Recovering/Resolving]
  - Dizziness [Recovering/Resolving]
